FAERS Safety Report 10675363 (Version 9)
Quarter: 2020Q1

REPORT INFORMATION
  Report Type: Spontaneous
  Country: US (occurrence: US)
  Receive Date: 20141224
  Receipt Date: 20200326
  Transmission Date: 20200409
  Serious: Yes (Other)
  Sender: FDA-Public Use
  Company Number: US-PFIZER INC-2014356382

PATIENT
  Age: 85 Year
  Sex: Female
  Weight: 77 kg

DRUGS (5)
  1. HUMALIN [Concomitant]
     Active Substance: INSULIN NOS
     Indication: BLOOD INSULIN ABNORMAL
     Dosage: 30 IU, DAILY (10 UNITS DURING THE DAY AND 20 UNITS AT NIGHT)
  2. LYRICA [Suspect]
     Active Substance: PREGABALIN
     Dosage: 50 MG, DAILY [TAKE ONE A DAY IN ORDER TO MAKE IT STRETCH]
     Route: 048
  3. LYRICA [Suspect]
     Active Substance: PREGABALIN
     Indication: PAIN IN EXTREMITY
     Dosage: 50 MG, AS NEEDED (2-3 TIMES EVERY DAY)
     Route: 048
  4. LYRICA [Suspect]
     Active Substance: PREGABALIN
     Indication: PAIN
     Dosage: 50 MG, 2X/DAY (ONE IN THE MORNING AND ONE AT NIGHT)
  5. LYRICA [Suspect]
     Active Substance: PREGABALIN
     Dosage: 50 MG, 2X/DAY [50MG TWO A DAY, ONE IN THE MORNING AND ONE AT NIGHT]
     Route: 048

REACTIONS (5)
  - Pain in extremity [Not Recovered/Not Resolved]
  - Intentional product use issue [Unknown]
  - Gait inability [Unknown]
  - Back disorder [Unknown]
  - Insomnia [Unknown]
